FAERS Safety Report 11540393 (Version 1)
Quarter: 2015Q3

REPORT INFORMATION
  Report Type: Spontaneous
  Country: US (occurrence: US)
  Receive Date: 20150923
  Receipt Date: 20150923
  Transmission Date: 20151125
  Serious: No
  Sender: FDA-Public Use
  Company Number: US-BEH-2014045149

PATIENT
  Sex: Female
  Weight: 43 kg

DRUGS (17)
  1. HEPARIN [Concomitant]
     Active Substance: HEPARIN SODIUM
  2. PREDNISONE. [Concomitant]
     Active Substance: PREDNISONE
  3. EPIPEN [Concomitant]
     Active Substance: EPINEPHRINE
  4. PLAQUENIL [Concomitant]
     Active Substance: HYDROXYCHLOROQUINE SULFATE
  5. PRIVIGEN [Suspect]
     Active Substance: HUMAN IMMUNOGLOBULIN G
     Route: 042
  6. DEXTROSE. [Concomitant]
     Active Substance: DEXTROSE
  7. PROTOPIC [Concomitant]
     Active Substance: TACROLIMUS
  8. TAMIFLU [Concomitant]
     Active Substance: OSELTAMIVIR PHOSPHATE
  9. ACETAMINOPHEN. [Concomitant]
     Active Substance: ACETAMINOPHEN
  10. REMICADE [Concomitant]
     Active Substance: INFLIXIMAB
  11. FOLIC ACID. [Concomitant]
     Active Substance: FOLIC ACID
  12. PRIVIGEN [Suspect]
     Active Substance: HUMAN IMMUNOGLOBULIN G
     Indication: DERMATOMYOSITIS
     Route: 042
  13. DIPHENHYDRAMINE. [Concomitant]
     Active Substance: DIPHENHYDRAMINE
  14. METHOTREXATE [Concomitant]
     Active Substance: METHOTREXATE
  15. SOLU-MEDROL [Concomitant]
     Active Substance: METHYLPREDNISOLONE SODIUM SUCCINATE
  16. VALIUM [Concomitant]
     Active Substance: DIAZEPAM
  17. PREVACID [Concomitant]
     Active Substance: LANSOPRAZOLE

REACTIONS (1)
  - Device issue [Unknown]
